FAERS Safety Report 4448561-0 (Version None)
Quarter: 2004Q3

REPORT INFORMATION
  Report Type: 
  Country: None (occurrence: None)
  Receive Date: 20040909
  Receipt Date: 20040819
  Transmission Date: 20050211
  Serious: Yes (Death, Other)
  Sender: FDA-Public Use
  Company Number: US_0408104895

PATIENT
  Age: 33 Year
  Sex: Male

DRUGS (2)
  1. FLUOXETINE HCL [Suspect]
     Indication: DEPRESSION
     Dosage: 20 MG DAY
  2. CLOZAPINE [Concomitant]

REACTIONS (9)
  - ANXIETY [None]
  - ASPIRATION [None]
  - CONDITION AGGRAVATED [None]
  - FEAR [None]
  - HALLUCINATION, VISUAL [None]
  - OBSTRUCTION [None]
  - RED BLOOD CELL SEDIMENTATION RATE INCREASED [None]
  - SEROTONIN SYNDROME [None]
  - UNEVALUABLE EVENT [None]
